FAERS Safety Report 10165616 (Version 1)
Quarter: 2014Q2

REPORT INFORMATION
  Report Type: Spontaneous
  Country: US (occurrence: US)
  Receive Date: 20140510
  Receipt Date: 20140510
  Transmission Date: 20141212
  Serious: No
  Sender: FDA-Public Use
  Company Number: US-BRISTOL-MYERS SQUIBB COMPANY-19864842

PATIENT
  Age: 59 Year
  Sex: Female

DRUGS (7)
  1. BYDUREON [Suspect]
  2. AGGRENOX [Concomitant]
  3. PROTONIX [Concomitant]
  4. LIVALO [Concomitant]
  5. BYSTOLIC [Concomitant]
  6. DIOVAN [Concomitant]
  7. METFORMIN [Concomitant]

REACTIONS (1)
  - Rash [Unknown]
